FAERS Safety Report 7422977-2 (Version None)
Quarter: 2011Q2

REPORT INFORMATION
  Report Type: 
  Country: None (occurrence: None)
  Receive Date: 20110411
  Receipt Date: 20110404
  Transmission Date: 20111010
  Serious: Yes (Death)
  Sender: FDA-Public Use
  Company Number: 2011SP006502

PATIENT
  Age: 79 Year
  Sex: Male
  Weight: 69.3 kg

DRUGS (17)
  1. MILRILA [Concomitant]
  2. HEPARIN [Concomitant]
  3. DOBUPUM [Concomitant]
  4. GASTER [Concomitant]
  5. ROCURONIUM BROMIDE [Suspect]
     Indication: PRODUCT USED FOR UNKNOWN INDICATION
     Dosage: ; IV
     Route: 042
     Dates: start: 20110202, end: 20110202
  6. ROCURONIUM BROMIDE [Suspect]
     Indication: PRODUCT USED FOR UNKNOWN INDICATION
     Dosage: ; IV
     Route: 042
     Dates: start: 20110203, end: 20110203
  7. ATROPINE [Concomitant]
  8. PENFILL R [Concomitant]
  9. ULTIVA [Concomitant]
  10. LASIX [Concomitant]
  11. HANP [Concomitant]
  12. DORMICUM [Concomitant]
  13. SOL MELCORT [Concomitant]
  14. DOPAMINE /00360702/ [Concomitant]
  15. PROPOFOL [Suspect]
     Indication: PRODUCT USED FOR UNKNOWN INDICATION
     Dosage: ; INDRP
     Route: 041
     Dates: start: 20110202
  16. SEVOFLURANE [Suspect]
     Indication: PRODUCT USED FOR UNKNOWN INDICATION
     Dosage: ; INH
     Route: 055
     Dates: start: 20110202
  17. FENTANYL [Concomitant]

REACTIONS (4)
  - RHABDOMYOLYSIS [None]
  - CARDIAC ARREST [None]
  - RENAL FAILURE [None]
  - CONTINUOUS HAEMODIAFILTRATION [None]
